FAERS Safety Report 10362528 (Version 1)
Quarter: 2014Q3

REPORT INFORMATION
  Report Type: Spontaneous
  Country: DE (occurrence: DE)
  Receive Date: 20140805
  Receipt Date: 20140805
  Transmission Date: 20150326
  Serious: Yes (Other)
  Sender: FDA-Public Use
  Company Number: PHHY2014DE094510

PATIENT
  Age: 49 Year

DRUGS (7)
  1. METHOTREXATE [Concomitant]
     Active Substance: METHOTREXATE
     Indication: LEUKAEMIA RECURRENT
     Dosage: 15 MG
     Route: 037
  2. RITUXIMAB [Concomitant]
     Active Substance: RITUXIMAB
     Indication: LEUKAEMIA RECURRENT
     Dosage: 20 MG, [D+1320,D+1334, D+1341, D+1356, D+1369, D+1382, D+1554,D+1560, D+1567, D+1618, D+1671
     Route: 037
  3. DEXAMETHASONE. [Concomitant]
     Active Substance: DEXAMETHASONE
     Indication: LEUKAEMIA RECURRENT
     Dosage: 4 MG
     Route: 037
  4. CYTARABIN [Concomitant]
     Active Substance: CYTARABINE
     Indication: LEUKAEMIA RECURRENT
     Dosage: 40 MG
     Route: 037
  5. DEXAMETHASONE. [Concomitant]
     Active Substance: DEXAMETHASONE
     Dosage: 4 MG, BID [D+52 TO D+83]
  6. NILOTINIB [Suspect]
     Active Substance: NILOTINIB
     Indication: ACUTE LYMPHOCYTIC LEUKAEMIA
     Dosage: 400 MG, BID
  7. NILOTINIB [Suspect]
     Active Substance: NILOTINIB
     Indication: OFF LABEL USE

REACTIONS (3)
  - Malignant neoplasm progression [Unknown]
  - Acute lymphocytic leukaemia [Unknown]
  - Metastases to meninges [Unknown]
